FAERS Safety Report 4578397-1 (Version None)
Quarter: 2005Q1

REPORT INFORMATION
  Report Type: 
  Country: None (occurrence: None)
  Receive Date: 20050211
  Receipt Date: 20050131
  Transmission Date: 20050727
  Serious: Yes (Life-Threatening)
  Sender: FDA-Public Use
  Company Number: DE-BRISTOL-MYERS SQUIBB COMPANY-12855516

PATIENT
  Age: 66 Year

DRUGS (2)
  1. ERBITUX [Suspect]
     Indication: COLON CANCER METASTATIC
     Dosage: 1ST DOSE 29-OCT-04, 2ND DOSE 05-NOV-04, 3RD DOSE 12-NOV-04
     Route: 042
     Dates: start: 20041029
  2. IRINOTECAN HCL [Suspect]
     Indication: COLON CANCER METASTATIC
     Dosage: IN COMBINATION WITH CETUXIMAB, 1ST DOSE 29-OCT, 2ND DOSE 05-NOV, 3RD DOSE 12-NOV-2004
     Route: 042
     Dates: start: 20041029

REACTIONS (1)
  - THROMBOCYTOPENIA [None]
